FAERS Safety Report 5809321-9 (Version None)
Quarter: 2008Q3

REPORT INFORMATION
  Report Type: 
  Country: None (occurrence: None)
  Receive Date: 20080714
  Receipt Date: 20080630
  Transmission Date: 20090109
  Serious: Yes (Other)
  Sender: FDA-Public Use
  Company Number: US-ELI_LILLY_AND_COMPANY-US200807000866

PATIENT
  Sex: Female
  Weight: 111.11 kg

DRUGS (11)
  1. BYETTA [Suspect]
     Dosage: 5 UG, DAILY (1/D)
     Route: 058
     Dates: end: 20080619
  2. COREG [Concomitant]
     Dosage: 20 MG, DAILY (1/D)
     Route: 048
  3. OMEPRAZOLE [Concomitant]
     Indication: BARRETT'S OESOPHAGUS
     Dosage: 20 MG, DAILY (1/D)
     Route: 048
  4. ENABLEX                            /01760402/ [Concomitant]
     Dosage: 15 MG, DAILY (1/D)
     Route: 048
  5. MACROBID [Concomitant]
     Dosage: 100 MG, AS NEEDED
     Route: 048
  6. ULTRACET [Concomitant]
     Dosage: UNK, 4/D
     Route: 048
  7. AVANDAMET [Concomitant]
     Dosage: UNK, DAILY (1/D)
     Route: 048
  8. SYNTHROID [Concomitant]
     Dosage: 50 UG, DAILY (1/D)
     Route: 048
  9. VYTORIN [Concomitant]
     Dosage: UNK, DAILY (1/D)
     Route: 048
  10. PIROXICAM [Concomitant]
     Dosage: 20 MG, DAILY (1/D)
     Route: 048
  11. DIOVAN HCT [Concomitant]
     Dosage: UNK, DAILY (1/D)
     Route: 048
     Dates: end: 20080619

REACTIONS (6)
  - ARTHRALGIA [None]
  - ARTHROPATHY [None]
  - JOINT STIFFNESS [None]
  - JOINT SWELLING [None]
  - OSTEOPOROSIS [None]
  - PANCREATITIS [None]
